FAERS Safety Report 4938474-X (Version None)
Quarter: 2006Q1

REPORT INFORMATION
  Report Type: 
  Country: None (occurrence: None)
  Receive Date: 20060302
  Receipt Date: 20060209
  Transmission Date: 20060701
  Serious: Yes (Other)
  Sender: FDA-Public Use
  Company Number: DE200602002036

PATIENT
  Sex: Female
  Weight: 70 kg

DRUGS (1)
  1. STRATTERA [Suspect]
     Indication: ATTENTION DEFICIT/HYPERACTIVITY DISORDER
     Dosage: 85 MG, DAILY (1/D), ORAL
     Route: 048
     Dates: start: 20050601

REACTIONS (3)
  - ASPARTATE AMINOTRANSFERASE INCREASED [None]
  - CONTUSION [None]
  - THROMBOCYTOPENIA [None]
